FAERS Safety Report 7443700-1 (Version None)
Quarter: 2011Q2

REPORT INFORMATION
  Report Type: 
  Country: None (occurrence: None)
  Receive Date: 20110428
  Receipt Date: 20110223
  Transmission Date: 20111010
  Serious: No
  Sender: FDA-Public Use
  Company Number: US-SANOFI-AVENTIS-2011SA011975

PATIENT
  Age: 48 Year
  Sex: Female
  Weight: 122.7 kg

DRUGS (2)
  1. CLOMIPHENE CITRATE [Suspect]
     Route: 048
  2. CLOMIPHENE CITRATE [Suspect]
     Dosage: FIVE DAY COURSE OF THERAPY
     Route: 048

REACTIONS (1)
  - DRUG SCREEN FALSE POSITIVE [None]
